FAERS Safety Report 9476762 (Version 1)
Quarter: 2013Q3

REPORT INFORMATION
  Report Type: Spontaneous
  Country: US (occurrence: US)
  Receive Date: 20130826
  Receipt Date: 20130826
  Transmission Date: 20140515
  Serious: No
  Sender: FDA-Public Use
  Company Number: US-BRISTOL-MYERS SQUIBB COMPANY-18977793

PATIENT
  Age: 25 Year
  Sex: Female
  Weight: 65.76 kg

DRUGS (4)
  1. KENALOG-40 [Suspect]
  2. NAPROXEN [Concomitant]
  3. PREDNISONE [Concomitant]
  4. AMOXICILLIN [Concomitant]

REACTIONS (1)
  - Rash [Recovered/Resolved]
